FAERS Safety Report 6150049-6 (Version None)
Quarter: 2009Q2

REPORT INFORMATION
  Report Type: 
  Country: None (occurrence: None)
  Receive Date: 20090407
  Receipt Date: 20090323
  Transmission Date: 20091009
  Serious: No
  Sender: FDA-Public Use
  Company Number: 232812K09USA

PATIENT
  Age: 28 Year
  Sex: Female
  Weight: 114 kg

DRUGS (6)
  1. REBIF [Suspect]
     Indication: MULTIPLE SCLEROSIS
     Dosage: 44 MCG, 3 IN 1 WEEKS, SUBCUTANEOUS
     Route: 058
     Dates: start: 20080701, end: 20081201
  2. FLEXERIL [Concomitant]
  3. VITAMIN B-COMPLEX (VITAMIN B-COMPLEX /00282501/) [Concomitant]
  4. CALCIUM (CALCIUM-SANDOZ /00009901/) [Concomitant]
  5. TYLENOL (COTYLENOL) [Concomitant]
  6. MOTRIN [Concomitant]

REACTIONS (2)
  - FEELING ABNORMAL [None]
  - PLATELET COUNT DECREASED [None]
